FAERS Safety Report 13761858 (Version 3)
Quarter: 2017Q4

REPORT INFORMATION
  Report Type: Report from Study
  Country: US (occurrence: US)
  Receive Date: 20170718
  Receipt Date: 20171026
  Transmission Date: 20180320
  Serious: Yes (Other)
  Sender: FDA-Public Use
  Company Number: US-AMGEN-USASL2017106635

PATIENT
  Age: 74 Year
  Sex: Female

DRUGS (1)
  1. REPATHA [Suspect]
     Active Substance: EVOLOCUMAB
     Indication: HYPERCHOLESTEROLAEMIA
     Dosage: 140 MG, Q2WK
     Route: 065

REACTIONS (12)
  - Injection site bruising [Unknown]
  - Gait disturbance [Unknown]
  - Pain in extremity [Recovering/Resolving]
  - Back pain [Unknown]
  - Arthralgia [Recovered/Resolved]
  - Tenderness [Unknown]
  - Pneumonia [Recovering/Resolving]
  - Bone pain [Unknown]
  - Skin discolouration [Unknown]
  - Rhinorrhoea [Not Recovered/Not Resolved]
  - Peripheral swelling [Unknown]
  - Injection site swelling [Unknown]
